APPROVED DRUG PRODUCT: SULFASALAZINE
Active Ingredient: SULFASALAZINE
Strength: 500MG
Dosage Form/Route: TABLET;ORAL
Application: A080197 | Product #001 | TE Code: AB
Applicant: CHARTWELL PHARMA SCIENCE LLC
Approved: Approved Prior to Jan 1, 1982 | RLD: No | RS: No | Type: RX